FAERS Safety Report 9072249 (Version 1)
Quarter: 2013Q1

REPORT INFORMATION
  Report Type: Spontaneous
  Country: US (occurrence: US)
  Receive Date: 20130206
  Receipt Date: 20130206
  Transmission Date: 20140127
  Serious: No
  Sender: FDA-Public Use
  Company Number: US-ALLERGAN-1216862US

PATIENT
  Sex: Female

DRUGS (5)
  1. RESTASIS? [Suspect]
     Indication: DRY EYE
     Dosage: 4 GTT, BID
     Route: 047
     Dates: start: 20121201
  2. LISINOPRIL [Concomitant]
     Indication: HYPERTENSION
     Dosage: 20 MG, QD
     Route: 048
  3. METOPOLOL [Concomitant]
     Indication: HYPERTENSION
     Dosage: 20 MG, BID
     Route: 048
  4. FLEXERIL                           /00428402/ [Concomitant]
     Indication: ARTHRITIS
     Dosage: UNK
     Route: 048
  5. SUPPLEMENTS NOS [Concomitant]
     Indication: SUPPLEMENTATION THERAPY
     Dosage: UNK
     Route: 048

REACTIONS (2)
  - Incorrect dose administered [Unknown]
  - Eye pain [Not Recovered/Not Resolved]
